FAERS Safety Report 22337993 (Version 1)
Quarter: 2023Q2

REPORT INFORMATION
  Report Type: Spontaneous
  Country: DE (occurrence: DE)
  Receive Date: 20230518
  Receipt Date: 20230518
  Transmission Date: 20230722
  Serious: Yes (Other)
  Sender: FDA-Public Use
  Company Number: DE-AMGEN-DEUSP2023081450

PATIENT

DRUGS (2)
  1. TRASTUZUMAB [Suspect]
     Active Substance: TRASTUZUMAB
     Indication: Breast cancer
     Dosage: UNK
     Route: 065
  2. CAPECITABINE [Concomitant]
     Active Substance: CAPECITABINE
     Indication: Breast cancer
     Dosage: UNK
     Route: 065

REACTIONS (12)
  - Radiation skin injury [Unknown]
  - Cardiac disorder [Unknown]
  - Pneumonitis [Unknown]
  - Breast oedema [Unknown]
  - Fibrosis [Unknown]
  - Brachial plexopathy [Unknown]
  - Skin exfoliation [Unknown]
  - Pain in extremity [Unknown]
  - Oedema [Unknown]
  - Fatigue [Unknown]
  - Arthralgia [Unknown]
  - Paraesthesia [Unknown]
